FAERS Safety Report 17802709 (Version 1)
Quarter: 2020Q2

REPORT INFORMATION
  Report Type: Spontaneous
  Country: ES (occurrence: ES)
  Receive Date: 20200519
  Receipt Date: 20200519
  Transmission Date: 20200714
  Serious: Yes (Hospitalization)
  Sender: FDA-Public Use
  Company Number: ES-TEVA-2020-ES-1235783

PATIENT
  Age: 74 Year
  Sex: Male

DRUGS (5)
  1. DEXAMETASONA (722A) [Suspect]
     Active Substance: DEXAMETHASONE
     Dosage: 20 MILLIGRAM DAILY;
     Route: 042
     Dates: start: 20200417, end: 20200424
  2. HIDROXICLOROQUINA (2143A) [Suspect]
     Active Substance: HYDROXYCHLOROQUINE
     Indication: SUSPECTED COVID-19
     Dosage: 400 MG
     Route: 048
     Dates: start: 20200418, end: 20200420
  3. ENOXAPARINA (2482A) [Suspect]
     Active Substance: ENOXAPARIN
     Indication: THROMBOSIS PROPHYLAXIS
     Dosage: 40 MG
     Route: 058
     Dates: start: 20200417, end: 20200424
  4. ACETILSALICILATO DE LISINA [Suspect]
     Active Substance: ASPIRIN DL-LYSINE
     Dosage: 200 MG
     Route: 042
     Dates: start: 20200418, end: 20200418
  5. ADIRO 100 MG COMPRIMIDOS GASTRORRESISTENTES EFG , 500 COMPRIMIDOS [Suspect]
     Active Substance: ASPIRIN
     Dosage: 100 MILLIGRAM DAILY; CP
     Route: 048
     Dates: start: 20200418, end: 20200423

REACTIONS (2)
  - Vessel puncture site haemorrhage [Recovered/Resolved]
  - Gastrointestinal haemorrhage [Recovered/Resolved]

NARRATIVE: CASE EVENT DATE: 20200418
